FAERS Safety Report 13226087 (Version 1)
Quarter: 2017Q1

REPORT INFORMATION
  Report Type: Spontaneous
  Country: US (occurrence: US)
  Receive Date: 20170212
  Receipt Date: 20170212
  Transmission Date: 20170428
  Serious: No
  Sender: FDA-Public Use
  Company Number: None

PATIENT
  Age: 20 Year
  Sex: Female
  Weight: 103.5 kg

DRUGS (2)
  1. MORPHINE SUL [Suspect]
     Active Substance: MORPHINE SULFATE
     Indication: CLOSTRIDIUM TEST POSITIVE
     Dosage: ?          QUANTITY:20 TABLET(S);?
     Route: 048
  2. MORPHINE SUL [Suspect]
     Active Substance: MORPHINE SULFATE
     Indication: ABDOMINAL PAIN UPPER
     Dosage: ?          QUANTITY:20 TABLET(S);?
     Route: 048

REACTIONS (2)
  - Bone pain [None]
  - Myalgia [None]

NARRATIVE: CASE EVENT DATE: 20170211
